FAERS Safety Report 15700165 (Version 1)
Quarter: 2018Q4

REPORT INFORMATION
  Report Type: Spontaneous
  Country: FR (occurrence: FR)
  Receive Date: 20181207
  Receipt Date: 20181207
  Transmission Date: 20190205
  Serious: Yes (Other)
  Sender: FDA-Public Use
  Company Number: FR-ASTRAZENECA-2018SF58543

PATIENT
  Age: 74 Year
  Sex: Male

DRUGS (1)
  1. MIFLONIL [Suspect]
     Active Substance: BUDESONIDE
     Indication: BRONCHITIS CHRONIC
     Dosage: 400UG/INHAL DAILY
     Route: 055

REACTIONS (1)
  - Foreign body aspiration [Unknown]
